FAERS Safety Report 12574210 (Version 1)
Quarter: 2016Q3

REPORT INFORMATION
  Report Type: Spontaneous
  Country: US (occurrence: US)
  Receive Date: 20160720
  Receipt Date: 20160720
  Transmission Date: 20161109
  Serious: No
  Sender: FDA-Public Use
  Company Number: US-TEVA-671073USA

PATIENT
  Sex: Female

DRUGS (3)
  1. ZECUITY [Suspect]
     Active Substance: SUMATRIPTAN SUCCINATE
     Indication: MIGRAINE
     Route: 062
     Dates: start: 201605, end: 201605
  2. ZECUITY [Suspect]
     Active Substance: SUMATRIPTAN SUCCINATE
     Route: 062
     Dates: start: 20160610, end: 20160610
  3. ZECUITY [Suspect]
     Active Substance: SUMATRIPTAN SUCCINATE
     Route: 062
     Dates: start: 20160603, end: 20160603

REACTIONS (8)
  - Application site discolouration [Not Recovered/Not Resolved]
  - Application site paraesthesia [Recovered/Resolved]
  - Application site inflammation [Recovered/Resolved]
  - Application site pruritus [Recovered/Resolved]
  - Drug ineffective [Unknown]
  - Application site erythema [Recovered/Resolved]
  - Application site pain [Recovered/Resolved]
  - Application site photosensitivity reaction [Not Recovered/Not Resolved]

NARRATIVE: CASE EVENT DATE: 2016
